FAERS Safety Report 18300804 (Version 5)
Quarter: 2021Q1

REPORT INFORMATION
  Report Type: Spontaneous
  Country: US (occurrence: US)
  Receive Date: 20200923
  Receipt Date: 20210106
  Transmission Date: 20210419
  Serious: No
  Sender: FDA-Public Use
  Company Number: US-SHIRE-US202031011

PATIENT
  Sex: Male
  Weight: 96.6 kg

DRUGS (16)
  1. GATTEX [Suspect]
     Active Substance: TEDUGLUTIDE\WATER
     Dosage: 5 MILLIGRAM, QD
     Route: 058
     Dates: start: 20200805, end: 20201117
  2. GATTEX [Suspect]
     Active Substance: TEDUGLUTIDE\WATER
     Dosage: 5 MILLIGRAM, QD
     Route: 058
     Dates: start: 20200805, end: 20201117
  3. GATTEX [Suspect]
     Active Substance: TEDUGLUTIDE\WATER
     Dosage: 5 MILLIGRAM, QD
     Route: 058
     Dates: start: 20200805, end: 20201117
  4. GATTEX [Suspect]
     Active Substance: TEDUGLUTIDE\WATER
     Dosage: 5 MILLIGRAM, QD
     Route: 058
     Dates: start: 20200805, end: 20201117
  5. GATTEX [Suspect]
     Active Substance: TEDUGLUTIDE\WATER
     Dosage: 0.57 UNK, QD
     Route: 058
     Dates: start: 20190819
  6. GATTEX [Suspect]
     Active Substance: TEDUGLUTIDE\WATER
     Indication: PRODUCT USED FOR UNKNOWN INDICATION
     Dosage: 0.570 UNIT UNKNOWN, 1X/DAY:QD
     Route: 058
     Dates: start: 20190819
  7. GATTEX [Suspect]
     Active Substance: TEDUGLUTIDE\WATER
     Indication: PRODUCT USED FOR UNKNOWN INDICATION
     Dosage: 0.570 UNIT UNKNOWN, 1X/DAY:QD
     Route: 058
     Dates: start: 20190819
  8. GATTEX [Suspect]
     Active Substance: TEDUGLUTIDE\WATER
     Dosage: 5 MILLIGRAM
     Route: 058
  9. GATTEX [Suspect]
     Active Substance: TEDUGLUTIDE\WATER
     Dosage: 5 MILLIGRAM
     Route: 058
  10. GATTEX [Suspect]
     Active Substance: TEDUGLUTIDE\WATER
     Dosage: 0.57 UNK, QD
     Route: 058
     Dates: start: 20190819
  11. GATTEX [Suspect]
     Active Substance: TEDUGLUTIDE\WATER
     Dosage: 0.57 UNK, QD
     Route: 058
     Dates: start: 20190819
  12. GATTEX [Suspect]
     Active Substance: TEDUGLUTIDE\WATER
     Indication: PRODUCT USED FOR UNKNOWN INDICATION
     Dosage: 0.570 UNIT UNKNOWN, 1X/DAY:QD
     Route: 058
     Dates: start: 20190819
  13. GATTEX [Suspect]
     Active Substance: TEDUGLUTIDE\WATER
     Indication: PRODUCT USED FOR UNKNOWN INDICATION
     Dosage: 0.570 UNIT UNKNOWN, 1X/DAY:QD
     Route: 058
     Dates: start: 20190819
  14. GATTEX [Suspect]
     Active Substance: TEDUGLUTIDE\WATER
     Dosage: 5 MILLIGRAM
     Route: 058
  15. GATTEX [Suspect]
     Active Substance: TEDUGLUTIDE\WATER
     Dosage: 0.57 UNK, QD
     Route: 058
     Dates: start: 20190819
  16. GATTEX [Suspect]
     Active Substance: TEDUGLUTIDE\WATER
     Dosage: 5 MILLIGRAM
     Route: 058

REACTIONS (2)
  - Muscle spasms [Not Recovered/Not Resolved]
  - Weight decreased [Unknown]
